FAERS Safety Report 4661375-1 (Version None)
Quarter: 2005Q2

REPORT INFORMATION
  Report Type: 
  Country: None (occurrence: None)
  Receive Date: 20050512
  Receipt Date: 20050207
  Transmission Date: 20051028
  Serious: Yes (Life-Threatening, Hospitalization)
  Sender: FDA-Public Use
  Company Number: 05-05-0787

PATIENT
  Age: 91 Year
  Sex: Female
  Weight: 41 kg

DRUGS (3)
  1. PHENYTOIN SODIUM [Suspect]
     Indication: EPILEPSY
     Dosage: 250MG OD ORAL
     Route: 048
     Dates: start: 20040913
  2. PHENYTOIN SODIUM [Suspect]
     Indication: MENINGIOMA
     Dosage: 250MG OD ORAL
     Route: 048
     Dates: start: 20040913
  3. RISEDRONATE [Concomitant]

REACTIONS (6)
  - ANAEMIA [None]
  - EOSINOPHIL COUNT INCREASED [None]
  - LIVER FUNCTION TEST ABNORMAL [None]
  - PLATELET COUNT INCREASED [None]
  - RASH GENERALISED [None]
  - RASH PRURITIC [None]
